FAERS Safety Report 19988450 (Version 1)
Quarter: 2021Q4

REPORT INFORMATION
  Report Type: Report from Study
  Country: EG (occurrence: EG)
  Receive Date: 20211023
  Receipt Date: 20211023
  Transmission Date: 20220304
  Serious: Yes (Other)
  Sender: FDA-Public Use
  Company Number: EG-NOVARTISPH-NVSC2021EG239438

PATIENT
  Age: 34 Year
  Sex: Female

DRUGS (5)
  1. GILENYA [Suspect]
     Active Substance: FINGOLIMOD HYDROCHLORIDE
     Indication: Multiple sclerosis
     Dosage: 0.5 MG, QD
     Route: 048
     Dates: start: 20210517, end: 20210930
  2. OSSOFORTIN [Concomitant]
     Indication: Vitamin D deficiency
     Dosage: 10000 MG, QW
     Route: 048
     Dates: start: 2019, end: 20210901
  3. DEVAROL [Concomitant]
     Indication: Vitamin D deficiency
     Dosage: UNK (ONE AMP PER MONTH)
     Route: 030
     Dates: start: 2019, end: 2020
  4. URSOPLUS [Concomitant]
     Indication: Hepatic enzyme abnormal
     Dosage: 2 DF, QD
     Route: 065
     Dates: start: 20211001, end: 20211010
  5. COBAL F [Concomitant]
     Indication: Product used for unknown indication
     Dosage: 2 DF, QD
     Route: 065
     Dates: start: 20211001, end: 20211010

REACTIONS (3)
  - Immunosuppression [Recovered/Resolved]
  - Hepatic enzyme increased [Recovered/Resolved]
  - Full blood count abnormal [Recovered/Resolved]

NARRATIVE: CASE EVENT DATE: 20210930
